FAERS Safety Report 16122542 (Version 5)
Quarter: 2019Q2

REPORT INFORMATION
  Report Type: Report from Study
  Country: CH (occurrence: CH)
  Receive Date: 20190327
  Receipt Date: 20190603
  Transmission Date: 20190711
  Serious: Yes (Hospitalization)
  Sender: FDA-Public Use
  Company Number: CH-ROCHE-2289538

PATIENT
  Age: 70 Year
  Sex: Female

DRUGS (10)
  1. TRASTUZUMAB EMTANSINE [Suspect]
     Active Substance: ADO-TRASTUZUMAB EMTANSINE
     Indication: BREAST CANCER
     Dosage: DATE OF MOST RECENT DOSE OF TRASTUZUMAB EMTANSINE (210 MG) PRIOR TO ADVERSE EVENT: 28/FEB/2019?THE S
     Route: 042
     Dates: start: 20180802
  2. ACTIVELLE [Concomitant]
     Active Substance: ESTRADIOL\NORETHINDRONE ACETATE
     Route: 065
     Dates: start: 2000
  3. CELECOXIB. [Concomitant]
     Active Substance: CELECOXIB
     Indication: POLYARTHRITIS
     Route: 065
     Dates: start: 20180612
  4. BEPANTHENE [Concomitant]
     Active Substance: DEXPANTHENOL
     Indication: EPISTAXIS
     Route: 065
     Dates: start: 20180416
  5. SPIOLTO RESPIMAT [Concomitant]
     Active Substance: OLODATEROL HYDROCHLORIDE\TIOTROPIUM BROMIDE MONOHYDRATE
     Indication: CHRONIC OBSTRUCTIVE PULMONARY DISEASE
     Route: 065
     Dates: start: 20190514
  6. RHINOMER [Concomitant]
     Route: 065
     Dates: start: 20190112, end: 20190320
  7. BRONCHO VAXOM [HAEMOPHILUS INFLUENZAE;KLEBSIELLA OZAENAE;KLEBSIELLA PN [Concomitant]
     Route: 065
     Dates: start: 20181001
  8. PANTOZOL [Concomitant]
     Active Substance: PANTOPRAZOLE SODIUM
     Route: 065
     Dates: start: 20180526
  9. FRAGMIN [Concomitant]
     Active Substance: DALTEPARIN SODIUM
     Route: 065
     Dates: start: 20190322, end: 20190325
  10. ESOMEPRAZOLE. [Concomitant]
     Active Substance: ESOMEPRAZOLE MAGNESIUM
     Route: 065
     Dates: start: 20190322, end: 20190325

REACTIONS (1)
  - Tracheitis [Recovered/Resolved]

NARRATIVE: CASE EVENT DATE: 20190320
